FAERS Safety Report 6594219-1 (Version None)
Quarter: 2010Q1

REPORT INFORMATION
  Report Type: 
  Country: None (occurrence: None)
  Receive Date: 20100222
  Receipt Date: 20100210
  Transmission Date: 20100710
  Serious: Yes (Hospitalization, Other)
  Sender: FDA-Public Use
  Company Number: US-PFIZER INC-2009297428

PATIENT

DRUGS (1)
  1. SUTENT [Suspect]
     Indication: METASTATIC RENAL CELL CARCINOMA
     Dosage: 50 MG, X 28 DAYS EVERY 42 DAYS
     Route: 048
     Dates: start: 20091108

REACTIONS (4)
  - BLOOD PRESSURE INCREASED [None]
  - HYPOTENSION [None]
  - PYREXIA [None]
  - SEPSIS [None]
